FAERS Safety Report 9234616 (Version 2)
Quarter: 2013Q3

REPORT INFORMATION
  Report Type: Spontaneous
  Country: US (occurrence: US)
  Receive Date: 20130416
  Receipt Date: 20130719
  Transmission Date: 20140515
  Serious: No
  Sender: FDA-Public Use
  Company Number: US-MYLANLABS-2013S1006230

PATIENT
  Age: 74 Year
  Sex: Female

DRUGS (14)
  1. OS-CAL [Concomitant]
  2. REPLENEX [Concomitant]
     Dosage: EXTRA STRENGTH
  3. LUTEIN ZEAXANTHIN [Concomitant]
  4. VITAMIN D [Concomitant]
  5. VITAMIN E [Concomitant]
  6. VALSARTAN AND HYDROCHLOROTHIAZIDE TABLETS [Suspect]
     Indication: HYPERTENSION
  7. POLYETHYLENE GLYCOL 3350 AND ELECTROLYTES FOR ORAL SOLUTION, USP [Suspect]
  8. LOVASTATIN [Concomitant]
  9. ZANTAC [Concomitant]
     Dosage: ONE BID
  10. CENTRUM SILVER [Concomitant]
  11. FISH OIL [Concomitant]
  12. CINNAMON /01647501/ [Concomitant]
  13. ALEVE [Concomitant]
  14. BABY ASPIRIN [Concomitant]

REACTIONS (3)
  - Rash erythematous [Recovered/Resolved]
  - Rash pruritic [Recovered/Resolved]
  - Skin discolouration [Recovered/Resolved]
